FAERS Safety Report 4431756-X (Version None)
Quarter: 2004Q3

REPORT INFORMATION
  Report Type: 
  Country: None (occurrence: None)
  Receive Date: 20040818
  Receipt Date: 20040803
  Transmission Date: 20050211
  Serious: Yes (Hospitalization)
  Sender: FDA-Public Use
  Company Number: F04200400227

PATIENT
  Age: 78 Year
  Sex: Female

DRUGS (3)
  1. ELOXATIN [Suspect]
     Indication: GASTRIC CANCER
     Dosage: 70.95 MG/M2 OTHER; INTRAVENOUS DRIP
     Route: 041
     Dates: start: 20040101, end: 20040101
  2. ELOXATIN [Suspect]
     Indication: METASTASIS
     Dosage: 70.95 MG/M2 OTHER; INTRAVENOUS DRIP
     Route: 041
     Dates: start: 20040101, end: 20040101
  3. XELODA [Concomitant]

REACTIONS (4)
  - ASTHENIA [None]
  - DIZZINESS [None]
  - FATIGUE [None]
  - SYNCOPE [None]
